FAERS Safety Report 4874134-1 (Version None)
Quarter: 2006Q1

REPORT INFORMATION
  Report Type: 
  Country: None (occurrence: None)
  Receive Date: 20060106
  Receipt Date: 20050510
  Transmission Date: 20060701
  Serious: Yes (Hospitalization, Other)
  Sender: FDA-Public Use
  Company Number: US-GLAXOSMITHKLINE-A0559419A

PATIENT
  Age: 8 Year
  Sex: Female
  Weight: 38.2 kg

DRUGS (3)
  1. PAXIL [Suspect]
     Indication: ANXIETY
     Route: 048
     Dates: start: 20030804, end: 20030829
  2. ZOLOFT [Suspect]
     Indication: ANXIETY
     Dosage: 25MG UNKNOWN
     Route: 048
     Dates: start: 20030101, end: 20030101
  3. RISPERDAL [Suspect]
     Indication: ANXIETY
     Route: 065
     Dates: start: 20030101, end: 20030101

REACTIONS (9)
  - AGGRESSION [None]
  - AGITATION [None]
  - ANXIETY [None]
  - HOMICIDE [None]
  - INSOMNIA [None]
  - PERSONALITY CHANGE [None]
  - PSYCHOMOTOR HYPERACTIVITY [None]
  - SCHOOL REFUSAL [None]
  - SUICIDAL IDEATION [None]
